FAERS Safety Report 7594662-8 (Version None)
Quarter: 2011Q3

REPORT INFORMATION
  Report Type: 
  Country: None (occurrence: None)
  Receive Date: 20110707
  Receipt Date: 20110630
  Transmission Date: 20111222
  Serious: Yes (Other)
  Sender: FDA-Public Use
  Company Number: IT-GENZYME-CAMP-1001017

PATIENT
  Sex: Female
  Weight: 56 kg

DRUGS (4)
  1. ALEMTUZUMAB [Suspect]
     Dosage: 12 MG, QDX3
     Route: 042
     Dates: start: 20100323, end: 20100325
  2. METHYLPREDNISOLONE [Concomitant]
     Dosage: 1 G, QDX3
     Route: 042
     Dates: start: 20100323, end: 20100325
  3. ALEMTUZUMAB [Suspect]
     Indication: MULTIPLE SCLEROSIS
     Dosage: 12 MG, QDX5
     Route: 042
     Dates: start: 20090330, end: 20090403
  4. METHYLPREDNISOLONE [Concomitant]
     Indication: MULTIPLE SCLEROSIS
     Dosage: 1.0 G, QDX3
     Route: 042
     Dates: start: 20090330, end: 20090401

REACTIONS (1)
  - HYPERTHYROIDISM [None]
